FAERS Safety Report 19717572 (Version 2)
Quarter: 2021Q3

REPORT INFORMATION
  Report Type: Spontaneous
  Country: US (occurrence: US)
  Receive Date: 20210818
  Receipt Date: 20210916
  Transmission Date: 20211014
  Serious: Yes (Other)
  Sender: FDA-Public Use
  Company Number: US-GW PHARMA-202108USGW03935

PATIENT

DRUGS (1)
  1. EPIDIOLEX [Suspect]
     Active Substance: CANNABIDIOL
     Indication: SEVERE MYOCLONIC EPILEPSY OF INFANCY
     Dosage: 100 MILLIGRAM, BID (DOSE INCREASED)
     Route: 048
     Dates: start: 20210804

REACTIONS (3)
  - Product administered to patient of inappropriate age [Unknown]
  - Change in seizure presentation [Not Recovered/Not Resolved]
  - Weight abnormal [Unknown]

NARRATIVE: CASE EVENT DATE: 2021
